FAERS Safety Report 23125293 (Version 1)
Quarter: 2023Q4

REPORT INFORMATION
  Report Type: Spontaneous
  Country: GB (occurrence: GB)
  Receive Date: 20231030
  Receipt Date: 20231030
  Transmission Date: 20240110
  Serious: Yes (Disabling, Other)
  Sender: FDA-Public Use
  Company Number: GB-MHRA-MED-202303131237563780-TCQHR

PATIENT
  Age: 23 Year
  Sex: Male
  Weight: 87 kg

DRUGS (1)
  1. CIPROFLOXACIN [Suspect]
     Active Substance: CIPROFLOXACIN
     Indication: Adverse drug reaction
     Dosage: 250MG TWICE A DAY; ;
     Route: 065
     Dates: start: 20210406, end: 20210420

REACTIONS (4)
  - Tendonitis [Not Recovered/Not Resolved]
  - Snapping hip syndrome [Not Recovered/Not Resolved]
  - Neuropathy peripheral [Not Recovered/Not Resolved]
  - Osteoarthritis [Not Recovered/Not Resolved]
